FAERS Safety Report 9761942 (Version 1)
Quarter: 2013Q4

REPORT INFORMATION
  Report Type: Spontaneous
  Country: US (occurrence: US)
  Receive Date: 20131216
  Receipt Date: 20131216
  Transmission Date: 20140711
  Serious: No
  Sender: FDA-Public Use
  Company Number: US-BIOGENIDEC-2013BI106273

PATIENT
  Age: 48 Year
  Sex: Female

DRUGS (7)
  1. TECFIDERA [Suspect]
     Indication: MULTIPLE SCLEROSIS
     Route: 048
     Dates: start: 20131003
  2. VITAMIN D3 [Concomitant]
  3. BACLOFEN [Concomitant]
  4. REBIF [Concomitant]
  5. MIRENA [Concomitant]
  6. SERTRALINE [Concomitant]
  7. LORAZEPAM [Concomitant]

REACTIONS (1)
  - Abdominal pain upper [Not Recovered/Not Resolved]
